FAERS Safety Report 6705699-2 (Version None)
Quarter: 2010Q2

REPORT INFORMATION
  Report Type: 
  Country: None (occurrence: None)
  Receive Date: 20100503
  Receipt Date: 20100423
  Transmission Date: 20101027
  Serious: Yes (Hospitalization, Other)
  Sender: FDA-Public Use
  Company Number: US-ABBOTT-10P-163-0640735-00

PATIENT
  Sex: Female
  Weight: 77.18 kg

DRUGS (13)
  1. NIASPAN [Suspect]
     Indication: HIGH DENSITY LIPOPROTEIN DECREASED
     Dates: start: 20090401
  2. NIASPAN [Suspect]
     Indication: LOW DENSITY LIPOPROTEIN INCREASED
  3. NIASPAN [Suspect]
  4. NIASPAN [Suspect]
     Dates: start: 20100201
  5. ASPIRIN [Concomitant]
     Indication: PROPHYLAXIS
     Dosage: CAN TAKE UP TO THREE TABLETS A DAY
     Dates: start: 20090101
  6. SYNTHROID [Concomitant]
     Indication: HYPOTHYROIDISM
  7. IMDUR [Concomitant]
     Indication: CORONARY ARTERY DISEASE
  8. HYDROCHLOROTHIAZIDE [Concomitant]
     Indication: CORONARY ARTERY DISEASE
  9. PLAVIX [Concomitant]
     Indication: STENT PLACEMENT
  10. LISINOPRIL [Concomitant]
     Indication: CORONARY ARTERY DISEASE
  11. METOPROLOL [Concomitant]
     Indication: CORONARY ARTERY DISEASE
     Dates: end: 20100201
  12. METOPROLOL [Concomitant]
     Dates: start: 20100201
  13. VITAMIN D [Concomitant]
     Indication: VITAMIN SUPPLEMENTATION

REACTIONS (3)
  - AORTIC OCCLUSION [None]
  - CHEST PAIN [None]
  - FLUSHING [None]
